FAERS Safety Report 20491953 (Version 4)
Quarter: 2022Q4

REPORT INFORMATION
  Report Type: Spontaneous
  Country: US (occurrence: US)
  Receive Date: 20220218
  Receipt Date: 20221221
  Transmission Date: 20230113
  Serious: Yes (Other)
  Sender: FDA-Public Use
  Company Number: US-SA-SAC20220215000430

PATIENT
  Age: 39 Year
  Sex: Male

DRUGS (2)
  1. CAPRELSA [Suspect]
     Active Substance: VANDETANIB
     Indication: Thyroid cancer
     Dosage: 300 MG, QD
     Route: 048
     Dates: start: 20211006
  2. VITAMIN D NOS [Concomitant]
     Active Substance: VITAMIN D NOS
     Dosage: UNK

REACTIONS (7)
  - Hypothyroidism [Unknown]
  - Skin disorder [Unknown]
  - Diarrhoea [Unknown]
  - Acne [Unknown]
  - Blood calcium decreased [Recovering/Resolving]
  - Blood pressure abnormal [Recovering/Resolving]
  - Alopecia [Unknown]
